FAERS Safety Report 9226335 (Version 4)
Quarter: 2013Q2

REPORT INFORMATION
  Report Type: Spontaneous
  Country: CN (occurrence: CN)
  Receive Date: 20130411
  Receipt Date: 20130523
  Transmission Date: 20140414
  Serious: Yes (Hospitalization, Other)
  Sender: FDA-Public Use
  Company Number: CN-UCBSA-082571

PATIENT
  Age: 4 Year
  Sex: Male
  Weight: 17 kg

DRUGS (3)
  1. KEPPRA [Suspect]
     Indication: EPILEPSY
     Dosage: 20 MG/KG
     Route: 048
     Dates: start: 20130320
  2. LUMINAL [Concomitant]
  3. MENINGITIS VACCINE [Concomitant]
     Dates: start: 2013, end: 2013

REACTIONS (7)
  - Status epilepticus [Recovered/Resolved]
  - Epilepsy [Recovered/Resolved]
  - Partial seizures [Unknown]
  - Grand mal convulsion [Unknown]
  - Food allergy [Unknown]
  - Asthma [Unknown]
  - Drug ineffective [Unknown]
